FAERS Safety Report 24288098 (Version 2)
Quarter: 2024Q3

REPORT INFORMATION
  Report Type: Spontaneous
  Country: US (occurrence: US)
  Receive Date: 20240905
  Receipt Date: 20240923
  Transmission Date: 20241017
  Serious: No
  Sender: NOVARTIS
  Company Number: US-002147023-NVSC2024US178637

PATIENT
  Age: 63 Year
  Sex: Male
  Weight: 81.19 kg

DRUGS (1)
  1. PLUVICTO [Suspect]
     Active Substance: LUTETIUM LU-177 VIPIVOTIDE TETRAXETAN
     Indication: Prostate cancer
     Dosage: 7.4 MBQ, EVERY 6 WEEKS, VIAL (GIVEN IN STL SO OFF-SITE)
     Route: 042
     Dates: start: 20230201, end: 20230911

REACTIONS (2)
  - Ocular hyperaemia [Not Recovered/Not Resolved]
  - Gingival discolouration [Not Recovered/Not Resolved]

NARRATIVE: CASE EVENT DATE: 20240801
